FAERS Safety Report 17199658 (Version 2)
Quarter: 2020Q1

REPORT INFORMATION
  Report Type: Spontaneous
  Country: RU (occurrence: RU)
  Receive Date: 20191226
  Receipt Date: 20200130
  Transmission Date: 20200409
  Serious: Yes (Other)
  Sender: FDA-Public Use
  Company Number: RU-EMD SERONO-9135874

PATIENT
  Age: 48 Year
  Sex: Female

DRUGS (8)
  1. OVITRELLE [Suspect]
     Active Substance: CHORIOGONADOTROPIN ALFA
     Indication: CONTROLLED OVARIAN STIMULATION
     Dosage: DOSE: 250 MCG/0.5 ML?PEN, ONE CLICK INJECTION
     Route: 058
     Dates: start: 20191212, end: 20191225
  2. OVITRELLE [Suspect]
     Active Substance: CHORIOGONADOTROPIN ALFA
     Dosage: REST OF THE DRUG WAS ADMINISTERED FROM THE SAME (FIRST) OVITRELLE PEN
     Route: 058
     Dates: start: 20191213
  3. DUPHASTON [Concomitant]
     Active Substance: DYDROGESTERONE
     Indication: INFERTILITY
     Dates: start: 20191210, end: 20191225
  4. CLEXANE [Concomitant]
     Active Substance: ENOXAPARIN SODIUM
     Indication: INFERTILITY
     Dates: start: 20191209, end: 20191219
  5. OVITRELLE [Suspect]
     Active Substance: CHORIOGONADOTROPIN ALFA
     Dosage: UNIT DOSE: 1 CLICK?PEN
     Route: 058
     Dates: start: 20191215
  6. PROGYNOVA                          /00045401/ [Concomitant]
     Active Substance: ESTRADIOL VALERATE
     Indication: INFERTILITY
     Dates: start: 20191210, end: 20191225
  7. ACTOVEGIN [Concomitant]
     Active Substance: BLOOD, BOVINE
     Indication: INFERTILITY
     Dates: start: 20191205, end: 20191225
  8. CURANTIL [Concomitant]
     Active Substance: DIPYRIDAMOLE
     Indication: INFERTILITY
     Dates: start: 20191205, end: 20191225

REACTIONS (11)
  - Nipple swelling [Recovered/Resolved]
  - General physical health deterioration [Unknown]
  - Intentional product misuse [Unknown]
  - Blood thyroid stimulating hormone increased [Recovered/Resolved]
  - Product dose omission [Recovered/Resolved]
  - Adnexa uteri pain [Recovered/Resolved]
  - Dyspnoea [Recovered/Resolved]
  - Incorrect dose administered [Recovered/Resolved]
  - Asphyxia [Recovered/Resolved]
  - Headache [Recovered/Resolved]
  - Pruritus [Recovered/Resolved]

NARRATIVE: CASE EVENT DATE: 20191212
